FAERS Safety Report 9251529 (Version 1)
Quarter: 2013Q1

REPORT INFORMATION
  Report Type: Spontaneous
  Country: US (occurrence: None)
  Receive Date: 20130305
  Receipt Date: 20130305
  Transmission Date: 20140127
  Serious: Yes (Hospitalization)
  Sender: FDA-Public Use
  Company Number: 163-21880-12062053 (0)

PATIENT
  Age: 74 Year
  Sex: Female
  Weight: 86.64 kg

DRUGS (9)
  1. REVLIMID [Suspect]
     Indication: PLASMA CELL MYELOMA
     Dosage: 1 IN 1 D
     Route: 048
     Dates: start: 200909
  2. DIOVAN(VALSARTAN)(UNKNOWN) [Concomitant]
  3. SIMVASTATIN(SIMVASTATIN)(UNKNOWN) [Concomitant]
  4. PRILOSEC(OMEPRAZOLE) (UNKNOWN) [Concomitant]
  5. CARVEDILOL(CARVEDILOL)(UNKNOWN) [Concomitant]
  6. KCL(POTASSIUM CHLORIDE)(UNKNOWN) [Concomitant]
  7. LASIX(FUROSEMIDE) (UNKNOWN) [Concomitant]
  8. CLARITIN(LORATADINE) (UNKNOWN) [Concomitant]
  9. GABAPENTIN(GABAPENTIN)(UNKNOWN) [Concomitant]

REACTIONS (1)
  - Pain [None]
